FAERS Safety Report 18106039 (Version 3)
Quarter: 2020Q3

REPORT INFORMATION
  Report Type: Spontaneous
  Country: US (occurrence: US)
  Receive Date: 20200803
  Receipt Date: 20200928
  Transmission Date: 20201103
  Serious: No
  Sender: FDA-Public Use
  Company Number: NVSC2020US216007

PATIENT
  Sex: Female

DRUGS (1)
  1. BETOPTIC S [Suspect]
     Active Substance: BETAXOLOL HYDROCHLORIDE
     Indication: PRODUCT USED FOR UNKNOWN INDICATION
     Dosage: 25 %, UNKNOWN
     Route: 065

REACTIONS (4)
  - Inappropriate schedule of product administration [Unknown]
  - Product dispensing issue [Unknown]
  - Product physical issue [Unknown]
  - Product dose omission issue [Unknown]
